FAERS Safety Report 20112731 (Version 1)
Quarter: 2021Q4

REPORT INFORMATION
  Report Type: Spontaneous
  Country: PT (occurrence: PT)
  Receive Date: 20211125
  Receipt Date: 20211125
  Transmission Date: 20220303
  Serious: Yes (Death, Other)
  Sender: FDA-Public Use
  Company Number: PT-BEH-2021138702

PATIENT
  Age: 41 Year
  Sex: Male

DRUGS (1)
  1. ALBUMIN HUMAN [Suspect]
     Active Substance: ALBUMIN HUMAN
     Indication: Plasmapheresis
     Route: 065

REACTIONS (7)
  - Coagulopathy [Not Recovered/Not Resolved]
  - Intestinal ischaemia [Fatal]
  - Compartment syndrome [Fatal]
  - Abdominal pain [Fatal]
  - Pyrexia [Fatal]
  - Tachycardia [Fatal]
  - Psychomotor hyperactivity [Fatal]
